FAERS Safety Report 6779801-0 (Version None)
Quarter: 2010Q2

REPORT INFORMATION
  Report Type: 
  Country: None (occurrence: None)
  Receive Date: 20100618
  Receipt Date: 20100608
  Transmission Date: 20101027
  Serious: Yes (Other)
  Sender: FDA-Public Use
  Company Number: US-PFIZER INC-2010043058

PATIENT
  Sex: Female
  Weight: 132.9 kg

DRUGS (17)
  1. GEODON [Suspect]
     Indication: AFFECTIVE DISORDER
     Dosage: 120 MG, 4X/DAY
     Route: 048
     Dates: start: 20090424
  2. GEODON [Suspect]
     Indication: POST-TRAUMATIC STRESS DISORDER
  3. GEODON [Suspect]
     Indication: ATTENTION DEFICIT/HYPERACTIVITY DISORDER
  4. GEODON [Suspect]
     Indication: BORDERLINE PERSONALITY DISORDER
  5. GEODON [Suspect]
     Indication: DEPRESSION
  6. ROPINIROLE HYDROCHLORIDE [Concomitant]
     Dosage: 0.25 MG, 2X/DAY (WEAN AS DISCUSSED AS OF 01APR2010)
     Route: 048
     Dates: start: 20100304
  7. BUPROPION HYDROCHLORIDE [Concomitant]
     Dosage: 100 MG, 2X/DAY
     Route: 048
     Dates: start: 20100129, end: 20100401
  8. CLONAZEPAM [Concomitant]
     Dosage: 1 MG, 4X/DAY
     Route: 048
     Dates: start: 20091113
  9. OMEPRAZOLE [Concomitant]
     Dosage: 20 MG, 1X/DAY
     Route: 048
     Dates: start: 20091022
  10. LEVOTHYROXINE SODIUM [Concomitant]
     Dosage: 300 UG, 1X/DAY
     Dates: start: 20091017
  11. ACETAMINOPHEN AND HYDROCODONE BITARTRATE [Concomitant]
     Dosage: [HYDROCODONE BITARTRATE 500 MG]/[PARACETAMOL 5 MG] DAILY
     Dates: start: 20091012
  12. IBUPROFEN [Concomitant]
     Dosage: 600 MG, 1X/DAY
     Dates: start: 20091012
  13. LEVOTHROID [Concomitant]
     Dosage: 300 UG, 1X/DAY
     Dates: start: 20091001
  14. AMFETAMINE/DEXAMFETAMINE [Concomitant]
     Dosage: 10 MG, 1X/DAY
     Route: 048
     Dates: start: 20100209
  15. GABAPENTIN [Concomitant]
     Dosage: 600 MG, 2X/DAY
     Route: 048
     Dates: start: 20100304
  16. SULINDAC [Concomitant]
     Dosage: 200 MG, UNK
  17. ALBUTEROL SULFATE [Concomitant]
     Dosage: 90 UG, UNK
     Route: 055
     Dates: start: 20090926

REACTIONS (3)
  - DRUG INEFFECTIVE [None]
  - FURUNCLE [None]
  - SECRETION DISCHARGE [None]
